FAERS Safety Report 4754129-9 (Version None)
Quarter: 2005Q3

REPORT INFORMATION
  Report Type: 
  Country: None (occurrence: None)
  Receive Date: 20050825
  Receipt Date: 20050215
  Transmission Date: 20060218
  Serious: Yes (Disabling, Other)
  Sender: FDA-Public Use
  Company Number: HQWYE357216FEB05

PATIENT
  Age: 12 Year
  Sex: Male
  Weight: 31.78 kg

DRUGS (1)
  1. CHILDREN'S ADVIL [Suspect]
     Indication: BODY TEMPERATURE INCREASED
     Dosage: TWO TEASPOONS EVERY EIGHT HOURS WHEN HAVING A TEMPERATURE, ORAL
     Route: 048
     Dates: start: 20050205, end: 20050205

REACTIONS (2)
  - PRURITUS [None]
  - RASH GENERALISED [None]
